FAERS Safety Report 23629242 (Version 1)
Quarter: 2024Q1

REPORT INFORMATION
  Report Type: Spontaneous
  Country: US (occurrence: US)
  Receive Date: 20240313
  Receipt Date: 20240313
  Transmission Date: 20240410
  Serious: No
  Sender: FDA-Public Use
  Company Number: US-Calliditas-2024CAL00385

PATIENT
  Age: 67 Year
  Sex: Female

DRUGS (3)
  1. TARPEYO [Suspect]
     Active Substance: BUDESONIDE
     Indication: IgA nephropathy
     Dosage: 16 MG (4 MG CAPSULES) ONCE DAILY
     Route: 048
     Dates: start: 20240302
  2. JARDIANCE [Concomitant]
     Active Substance: EMPAGLIFLOZIN
  3. PURE BAKING SODA [Concomitant]
     Active Substance: SODIUM BICARBONATE

REACTIONS (2)
  - Diarrhoea [Unknown]
  - Product residue present [Unknown]
